FAERS Safety Report 6642160-8 (Version None)
Quarter: 2010Q1

REPORT INFORMATION
  Report Type: 
  Country: None (occurrence: None)
  Receive Date: 20100319
  Receipt Date: 20100308
  Transmission Date: 20100710
  Serious: Yes (Other)
  Sender: FDA-Public Use
  Company Number: US-PFIZER INC-2010030797

PATIENT
  Age: 15 Year
  Sex: Male

DRUGS (2)
  1. GENOTROPIN [Suspect]
     Indication: GROWTH RETARDATION
     Dosage: UNK
     Dates: start: 20080101, end: 20090101
  2. TEV-TROPIN [Suspect]
     Indication: GROWTH RETARDATION
     Dosage: UNK
     Dates: start: 20090101

REACTIONS (1)
  - MELANOCYTIC NAEVUS [None]
